FAERS Safety Report 13017274 (Version 2)
Quarter: 2017Q1

REPORT INFORMATION
  Report Type: Report from Study
  Country: None (occurrence: US)
  Receive Date: 20161212
  Receipt Date: 20170127
  Transmission Date: 20170428
  Serious: Yes (Other)
  Sender: FDA-Public Use
  Company Number: US-ABBVIE-16K-163-1802568-00

PATIENT
  Age: 30 Year
  Sex: Female
  Weight: 70.37 kg

DRUGS (3)
  1. HUMIRA [Suspect]
     Active Substance: ADALIMUMAB
     Indication: CROHN^S DISEASE
     Route: 058
     Dates: start: 201512, end: 201603
  2. HUMIRA [Suspect]
     Active Substance: ADALIMUMAB
     Route: 058
     Dates: start: 201604, end: 201612
  3. HUMIRA [Suspect]
     Active Substance: ADALIMUMAB
     Route: 058
     Dates: start: 201612

REACTIONS (4)
  - Abdominal adhesions [Recovered/Resolved]
  - Small intestinal obstruction [Recovered/Resolved]
  - Gastrointestinal pain [Recovering/Resolving]
  - Gastrointestinal inflammation [Recovering/Resolving]

NARRATIVE: CASE EVENT DATE: 2016
